FAERS Safety Report 4277529-2 (Version None)
Quarter: 2004Q1

REPORT INFORMATION
  Report Type: 
  Country: None (occurrence: None)
  Receive Date: 20040121
  Receipt Date: 20040112
  Transmission Date: 20041129
  Serious: Yes (Hospitalization)
  Sender: FDA-Public Use
  Company Number: 2004-01-0523

PATIENT
  Age: 40 Year
  Sex: Male

DRUGS (2)
  1. INTERFERON ALFA INJECTABLE [Suspect]
     Indication: CHRONIC MYELOID LEUKAEMIA
     Dosage: 3-1.5* MU TIW
     Dates: start: 20010501, end: 20010614
  2. HYDROXYUREA [Concomitant]

REACTIONS (8)
  - DEPRESSION [None]
  - GLOMERULONEPHRITIS FOCAL [None]
  - LOCALISED OEDEMA [None]
  - NAUSEA [None]
  - NEPHROTIC SYNDROME [None]
  - RENAL FAILURE [None]
  - SCROTAL OEDEMA [None]
  - SLEEP DISORDER [None]
